FAERS Safety Report 13957618 (Version 1)
Quarter: 2017Q3

REPORT INFORMATION
  Report Type: Spontaneous
  Country: US (occurrence: US)
  Receive Date: 20170911
  Receipt Date: 20170911
  Transmission Date: 20171128
  Serious: Yes (Hospitalization)
  Sender: FDA-Public Use
  Company Number: US-ROCHE-1130978

PATIENT
  Sex: Male

DRUGS (11)
  1. RITUXAN [Suspect]
     Active Substance: RITUXIMAB
     Indication: IMMUNE THROMBOCYTOPENIC PURPURA
  2. COLACE [Concomitant]
     Active Substance: DOCUSATE SODIUM
  3. CARAFATE [Concomitant]
     Active Substance: SUCRALFATE
  4. PREDNISONE. [Concomitant]
     Active Substance: PREDNISONE
  5. RITUXAN [Suspect]
     Active Substance: RITUXIMAB
     Indication: CHRONIC LYMPHOCYTIC LEUKAEMIA
     Route: 065
     Dates: start: 19991213, end: 20000105
  6. ALBUTEROL. [Concomitant]
     Active Substance: ALBUTEROL
  7. FOSAMAX [Concomitant]
     Active Substance: ALENDRONATE SODIUM
  8. CALCIUM [Concomitant]
     Active Substance: CALCIUM
  9. DIGOXIN. [Concomitant]
     Active Substance: DIGOXIN
  10. ATROVENT [Concomitant]
     Active Substance: IPRATROPIUM BROMIDE
  11. DEMADEX [Concomitant]
     Active Substance: TORSEMIDE

REACTIONS (3)
  - Dyspnoea [Unknown]
  - Diarrhoea [Unknown]
  - Chest pain [Unknown]
